FAERS Safety Report 25235780 (Version 1)
Quarter: 2025Q2

REPORT INFORMATION
  Report Type: Spontaneous
  Country: US (occurrence: US)
  Receive Date: 20250424
  Receipt Date: 20250424
  Transmission Date: 20250717
  Serious: Yes (Other)
  Sender: GALDERMA
  Company Number: US-GALDERMA-US2025006298

PATIENT

DRUGS (1)
  1. DOXYCYCLINE [Suspect]
     Active Substance: DOXYCYCLINE
     Indication: Acne
     Route: 065

REACTIONS (8)
  - Oesophageal ulcer [Unknown]
  - Eosinophilic oesophagitis [Unknown]
  - Odynophagia [Recovered/Resolved]
  - Oesophagitis [Unknown]
  - Hyperaemia [Unknown]
  - Throat irritation [Unknown]
  - Dysphagia [Recovering/Resolving]
  - Intentional product use issue [Recovered/Resolved]
